FAERS Safety Report 9940045 (Version 1)
Quarter: 2014Q1

REPORT INFORMATION
  Report Type: Report from Study
  Country: US (occurrence: US)
  Receive Date: 20140303
  Receipt Date: 20140303
  Transmission Date: 20141002
  Serious: No
  Sender: FDA-Public Use
  Company Number: US-ABBVIE-13P-163-1033345-00

PATIENT
  Age: 50 Year
  Sex: Male

DRUGS (4)
  1. HUMIRA [Suspect]
     Indication: PSORIASIS
     Dates: start: 20121227, end: 20121227
  2. HUMIRA [Suspect]
     Dates: start: 20130103
  3. DILANTIN [Concomitant]
     Indication: EPILEPSY
     Dosage: LEVELS MONITORED REGULARLY AND ARE WITHIN THERAPEUTIC RANGE
  4. HYDROXYZINE [Concomitant]
     Indication: PRURITUS
     Dosage: EVERY 8 HOURS

REACTIONS (2)
  - Rash [Not Recovered/Not Resolved]
  - Drug ineffective [Not Recovered/Not Resolved]
